FAERS Safety Report 9665227 (Version 2)
Quarter: 2013Q4

REPORT INFORMATION
  Report Type: Report from Study
  Country: LB (occurrence: LB)
  Receive Date: 20131101
  Receipt Date: 20131101
  Transmission Date: 20140711
  Serious: Yes (Other)
  Sender: FDA-Public Use
  Company Number: PHHY2012LB062773

PATIENT
  Age: 50 Year
  Sex: Female

DRUGS (6)
  1. ACLASTA [Suspect]
     Indication: OSTEOPOROSIS
     Dosage: 5 MG, UNK
     Route: 042
     Dates: start: 20120701
  2. MULTIVITAMINS W/MINERALS [Concomitant]
     Dosage: UNK TWICE WEEKLY
     Route: 058
  3. AMLODIPINE [Concomitant]
     Dosage: 1 DF, QD
     Route: 048
  4. EURO-D [Concomitant]
     Dosage: UNK ONCE WEEKLY
     Route: 048
  5. CALCIUM [Concomitant]
     Dosage: UNK UKN, UNK
  6. MYFORTIC [Concomitant]
     Dosage: 1 DF, BID
     Route: 048

REACTIONS (5)
  - Coma [Unknown]
  - Nausea [Recovered/Resolved]
  - Vomiting [Recovered/Resolved]
  - Pyrexia [Unknown]
  - Influenza like illness [Unknown]
